FAERS Safety Report 7800917-1 (Version None)
Quarter: 2011Q4

REPORT INFORMATION
  Report Type: 
  Country: None (occurrence: None)
  Receive Date: 20111006
  Receipt Date: 20110929
  Transmission Date: 20120403
  Serious: No
  Sender: FDA-Public Use
  Company Number: US-BAYER-2011-093519

PATIENT
  Age: 51 Year

DRUGS (2)
  1. MAGNEVIST [Suspect]
     Indication: PRODUCT USED FOR UNKNOWN INDICATION
     Dosage: UNK
     Dates: start: 20110929, end: 20110929
  2. MAGNEVIST [Suspect]
     Dosage: UNK
     Dates: start: 20110929, end: 20110929

REACTIONS (2)
  - VOMITING [None]
  - NAUSEA [None]
